FAERS Safety Report 4838750-5 (Version None)
Quarter: 2005Q4

REPORT INFORMATION
  Report Type: 
  Country: None (occurrence: None)
  Receive Date: 20051123
  Receipt Date: 20051123
  Transmission Date: 20060501
  Serious: Yes (Hospitalization)
  Sender: FDA-Public Use
  Company Number: None

PATIENT
  Age: 80 Year
  Sex: Male
  Weight: 78.9 kg

DRUGS (10)
  1. WARFARIN [Suspect]
     Dosage: ORAL
     Route: 048
  2. ISOSORBIDE DINITRATE [Concomitant]
  3. LORATADINE [Concomitant]
  4. SIMVASTATIN [Concomitant]
  5. OMEPRAZOLE [Concomitant]
  6. DARBEPOETIN ALFA [Concomitant]
  7. FERROUS SO4 [Concomitant]
  8. HYDROCODONE 5/ACETAMINOPHEN [Concomitant]
  9. TEMAZEPAM [Concomitant]
  10. FLUTICASONE PROP [Concomitant]

REACTIONS (1)
  - INTERNATIONAL NORMALISED RATIO INCREASED [None]
